FAERS Safety Report 19130518 (Version 1)
Quarter: 2021Q2

REPORT INFORMATION
  Report Type: Spontaneous
  Country: US (occurrence: US)
  Receive Date: 20210414
  Receipt Date: 20210414
  Transmission Date: 20210717
  Serious: No
  Sender: FDA-Public Use
  Company Number: US-SA-2021SA120456

PATIENT
  Sex: Male

DRUGS (4)
  1. DUPIXENT [Suspect]
     Active Substance: DUPILUMAB
     Indication: FOLLICULITIS
  2. DUPIXENT [Suspect]
     Active Substance: DUPILUMAB
     Indication: ECZEMA
  3. DUPIXENT [Suspect]
     Active Substance: DUPILUMAB
     Indication: RASH
  4. DUPIXENT [Suspect]
     Active Substance: DUPILUMAB
     Indication: PRURITUS

REACTIONS (6)
  - Injury associated with device [Unknown]
  - Product use in unapproved indication [Unknown]
  - Device use issue [Unknown]
  - Incorrect dose administered by device [Unknown]
  - Product preparation error [Unknown]
  - Device leakage [Unknown]

NARRATIVE: CASE EVENT DATE: 2021
